FAERS Safety Report 7971624-X (Version None)
Quarter: 2011Q4

REPORT INFORMATION
  Report Type: 
  Country: None (occurrence: None)
  Receive Date: 20111212
  Receipt Date: 20111201
  Transmission Date: 20120403
  Serious: Yes (Hospitalization)
  Sender: FDA-Public Use
  Company Number: FR-ASTRAZENECA-2011SE73428

PATIENT
  Age: 83 Year
  Sex: Female

DRUGS (7)
  1. ACETAMINOPHEN [Concomitant]
  2. OXAZEPAM [Concomitant]
  3. SIMVASTATIN [Concomitant]
  4. AMLODIPINE BESYLATE [Concomitant]
  5. UMULINE [Concomitant]
  6. ESCITALOPRAM OXALATE [Concomitant]
  7. TENORMIN [Suspect]
     Indication: HYPERTENSION
     Route: 048

REACTIONS (4)
  - HEAD INJURY [None]
  - FALL [None]
  - ATRIOVENTRICULAR BLOCK [None]
  - ATRIOVENTRICULAR BLOCK COMPLETE [None]
